FAERS Safety Report 24801783 (Version 1)
Quarter: 2025Q1

REPORT INFORMATION
  Report Type: Other
  Country: US (occurrence: US)
  Receive Date: 20250102
  Receipt Date: 20250102
  Transmission Date: 20250409
  Serious: No
  Sender: HLS THERAPEUTICS
  Company Number: US-HLS-202400167

PATIENT
  Age: 17 Year
  Sex: Female

DRUGS (5)
  1. CLOZAPINE [Suspect]
     Active Substance: CLOZAPINE
     Indication: Schizophrenia
     Route: 065
  2. LORAZEPAM [Concomitant]
     Active Substance: LORAZEPAM
     Indication: Anxiety
     Route: 065
  3. POLYETHYLENE GLYCOL [Concomitant]
     Active Substance: POLYETHYLENE GLYCOL
     Indication: Constipation
     Route: 065
  4. MELATONIN [Concomitant]
     Active Substance: MELATONIN
     Indication: Product used for unknown indication
     Route: 065
  5. levonorgestrel / ethinyl estradiol [Concomitant]
     Indication: Product used for unknown indication
     Route: 065

REACTIONS (7)
  - Weight increased [Unknown]
  - Hypersomnia [Unknown]
  - Fatigue [Unknown]
  - Increased appetite [Unknown]
  - Off label use [Unknown]
  - Drug effect less than expected [Unknown]
  - Constipation [Unknown]
